FAERS Safety Report 6829834-0 (Version None)
Quarter: 2010Q3

REPORT INFORMATION
  Report Type: 
  Country: None (occurrence: None)
  Receive Date: 20100706
  Receipt Date: 20100621
  Transmission Date: 20110219
  Serious: Yes (Death, Hospitalization)
  Sender: FDA-Public Use
  Company Number: AUR-APL-2010-01087

PATIENT
  Age: 71 Year
  Sex: Female
  Weight: 50 kg

DRUGS (12)
  1. AMLODIPINE [Suspect]
     Dosage: 27 TABS, ONE DOSE, ORAL
     Route: 048
  2. LIPID EMULSION 20% [Suspect]
     Dosage: 2,000ML, FOR 4.5H, IV
     Route: 042
  3. ASPIRIN [Concomitant]
  4. ALBUTEROL [Concomitant]
  5. FEXOFENADINE [Concomitant]
  6. ACETAMINOPHEN AND HYDROCODONE BITARTRATE [Concomitant]
  7. IRON SULFATETHIAMIN COMPOUND TAB [Concomitant]
  8. LISINOPRIL [Concomitant]
  9. SENNA [Concomitant]
  10. SIMVASTATIN [Concomitant]
  11. TIOTROPIUM [Concomitant]
  12. TRAZODONE HYDROCHLORIDE [Concomitant]

REACTIONS (9)
  - ACCIDENTAL OVERDOSE [None]
  - ACIDOSIS [None]
  - ANAEMIA [None]
  - DRUG TOXICITY [None]
  - HYPONATRAEMIA [None]
  - HYPOTENSION [None]
  - ORGAN FAILURE [None]
  - PULMONARY OEDEMA [None]
  - URINE OUTPUT DECREASED [None]
